FAERS Safety Report 15849359 (Version 3)
Quarter: 2019Q1

REPORT INFORMATION
  Report Type: Report from Study
  Country: US (occurrence: US)
  Receive Date: 20190121
  Receipt Date: 20190221
  Transmission Date: 20190417
  Serious: No
  Sender: FDA-Public Use
  Company Number: US-ALEXION PHARMACEUTICALS INC.-A201900813

PATIENT
  Sex: Male

DRUGS (1)
  1. SOLIRIS [Suspect]
     Active Substance: ECULIZUMAB
     Indication: PRODUCT USED FOR UNKNOWN INDICATION
     Dosage: UNK
     Route: 065

REACTIONS (15)
  - Psychomotor hyperactivity [Unknown]
  - Decreased appetite [Unknown]
  - Memory impairment [Unknown]
  - Ageusia [Unknown]
  - Peripheral swelling [Unknown]
  - Swelling [Unknown]
  - Abdominal distension [Unknown]
  - Ocular hyperaemia [Unknown]
  - Fatigue [Unknown]
  - Foreign body sensation in eyes [Unknown]
  - Swelling face [Unknown]
  - Hyperhidrosis [Unknown]
  - Asthenia [Unknown]
  - Insomnia [Unknown]
  - Muscle spasms [Unknown]
